FAERS Safety Report 4601802-9 (Version None)
Quarter: 2005Q1

REPORT INFORMATION
  Report Type: 
  Country: None (occurrence: None)
  Receive Date: 20050128
  Receipt Date: 20041022
  Transmission Date: 20050727
  Serious: Yes (Other)
  Sender: FDA-Public Use
  Company Number: 140517USA

PATIENT
  Age: 50 Year
  Sex: Female

DRUGS (6)
  1. COPAXONE [Suspect]
     Indication: MULTIPLE SCLEROSIS
     Dosage: 20 MILLIGRAM QD SUBCUTANEOUS
     Route: 058
     Dates: start: 20010701
  2. THEOPHYLLINE [Concomitant]
  3. ALLEGRA [Concomitant]
  4. ALLERGY INHALERS [Concomitant]
  5. NASONEX [Concomitant]
  6. SUDAFED 12 HOUR [Concomitant]

REACTIONS (1)
  - PERICARDIAL EFFUSION [None]
